FAERS Safety Report 7164108-2 (Version None)
Quarter: 2010Q4

REPORT INFORMATION
  Report Type: 
  Country: None (occurrence: None)
  Receive Date: 20101123
  Receipt Date: 20100909
  Transmission Date: 20110411
  Serious: No
  Sender: FDA-Public Use
  Company Number: 018512

PATIENT
  Sex: Female
  Weight: 69.4 kg

DRUGS (5)
  1. CIMZIA [Suspect]
     Indication: CROHN'S DISEASE
     Dosage: 400 MG 1X/14 DAYS SUBCUTANEOUS
     Route: 058
     Dates: start: 20090901
  2. PENTASA [Concomitant]
  3. METHYLDOPA [Concomitant]
  4. CALCIUM [Concomitant]
  5. PRENATAL VITAMINS /01549301/ [Concomitant]

REACTIONS (1)
  - PREGNANCY [None]
